FAERS Safety Report 5988722-2 (Version None)
Quarter: 2008Q4

REPORT INFORMATION
  Report Type: 
  Country: None (occurrence: None)
  Receive Date: 20081210
  Receipt Date: 20081201
  Transmission Date: 20090506
  Serious: Yes (Other)
  Sender: FDA-Public Use
  Company Number: PHHY2008NL29820

PATIENT
  Sex: Female
  Weight: 62 kg

DRUGS (14)
  1. PARLODEL [Suspect]
     Indication: PARKINSON'S DISEASE
     Dosage: 5 MG, QD
     Route: 048
     Dates: start: 20021213
  2. PARLODEL [Suspect]
     Indication: INTESTINAL FUNCTIONAL DISORDER
  3. MADOPAR [Suspect]
     Indication: PARKINSON'S DISEASE
     Dosage: 62.5 MG TIMES PER 937.5MG
     Dates: start: 20041103
  4. MADOPAR [Suspect]
     Indication: INTESTINAL FUNCTIONAL DISORDER
  5. DUSPATAL [Suspect]
     Indication: PARKINSON'S DISEASE
     Dosage: 2 DAILY DOSE 200MG
     Dates: start: 20081107, end: 20081111
  6. DUSPATAL [Suspect]
     Indication: INTESTINAL FUNCTIONAL DISORDER
  7. SLOW-K [Concomitant]
     Dosage: 2 DAILY DOSE 600MG
     Dates: start: 20080211
  8. ACENOCOUMAROL [Concomitant]
     Dosage: 1 MG
     Dates: start: 20070529
  9. FUROSEMIDE [Concomitant]
     Dosage: 2 DAILY DOSE 40MG
     Dates: start: 20071026
  10. LANOXIN [Concomitant]
     Dosage: 1 DAILY DOSE 125UG
     Dates: start: 20070522
  11. NORMACOL [Concomitant]
     Dosage: 1 TIMES PER 2 DAYS 1DF
     Dates: start: 20070314, end: 20081107
  12. MOVICOLON [Concomitant]
     Indication: INTESTINAL FUNCTIONAL DISORDER
     Dosage: 1 TIMES PER 2 DAYS 1 DF
     Dates: start: 20051019, end: 20081107
  13. COLECALCIFEROL [Concomitant]
     Dosage: 2800 IU
     Dates: start: 20070522
  14. NEXIUM [Concomitant]
     Dosage: 1 DAILY DOSE 20MG
     Dates: start: 20070522

REACTIONS (1)
  - PARKINSON'S DISEASE [None]
